FAERS Safety Report 4863438-4 (Version None)
Quarter: 2005Q4

REPORT INFORMATION
  Report Type: 
  Country: None (occurrence: None)
  Receive Date: 20051222
  Receipt Date: 20050121
  Transmission Date: 20060501
  Serious: No
  Sender: FDA-Public Use
  Company Number: US-GLAXOSMITHKLINE-A0541748A

PATIENT
  Age: 63 Year
  Sex: Male

DRUGS (2)
  1. FLONASE [Suspect]
     Indication: NASAL CONGESTION
     Dosage: 2SPR PER DAY
     Route: 045
     Dates: start: 20030101
  2. VICKS SINEX SPRAY [Concomitant]

REACTIONS (2)
  - DRUG INEFFECTIVE [None]
  - THERAPEUTIC RESPONSE UNEXPECTED [None]
